FAERS Safety Report 10252591 (Version 1)
Quarter: 2014Q2

REPORT INFORMATION
  Report Type: Spontaneous
  Country: US (occurrence: None)
  Receive Date: 20140620
  Receipt Date: 20140620
  Transmission Date: 20141212
  Serious: Yes (Other)
  Sender: FDA-Public Use
  Company Number: None

PATIENT
  Age: 51 Year
  Sex: Male

DRUGS (5)
  1. LIVALO 1 MG TABLET [Suspect]
     Indication: BLOOD CHOLESTEROL INCREASED
     Route: 048
     Dates: start: 20140521, end: 20140606
  2. ALLOPURIROL [Concomitant]
  3. ATENOLOL [Concomitant]
  4. CLOPIDOGREL [Concomitant]
  5. PANTOPRAZOLE [Concomitant]

REACTIONS (3)
  - Muscular weakness [None]
  - Arthralgia [None]
  - Hepatic enzyme increased [None]
